FAERS Safety Report 5702337-2 (Version None)
Quarter: 2008Q2

REPORT INFORMATION
  Report Type: 
  Country: None (occurrence: None)
  Receive Date: 20080411
  Receipt Date: 20080402
  Transmission Date: 20081010
  Serious: Yes (Other)
  Sender: FDA-Public Use
  Company Number: PL-WYE-H03441408

PATIENT
  Age: 30 Year
  Sex: Male

DRUGS (1)
  1. EFFEXOR XR [Suspect]
     Indication: MAJOR DEPRESSION
     Route: 048
     Dates: start: 20070101, end: 20070101

REACTIONS (1)
  - PANIC ATTACK [None]
